FAERS Safety Report 9719333 (Version 2)
Quarter: 2013Q4

REPORT INFORMATION
  Report Type: Spontaneous
  Country: GB (occurrence: GB)
  Receive Date: 20131127
  Receipt Date: 20131217
  Transmission Date: 20140711
  Serious: Yes (Death)
  Sender: FDA-Public Use
  Company Number: PHFR2013GB006726

PATIENT
  Age: 42 Year
  Sex: Male

DRUGS (3)
  1. CLOZARIL [Suspect]
     Indication: SCHIZOPHRENIA
     Dosage: 550 MG, DAILY
     Route: 048
     Dates: start: 20080704
  2. HYOSCINE HYDROBROMIDE [Concomitant]
     Dosage: 600 MG, DAILY
     Route: 048
     Dates: start: 201209
  3. LOSEPRAZOL [Concomitant]
     Dosage: 30 MG, DAILY
     Route: 048

REACTIONS (5)
  - Renal cancer [Fatal]
  - Metastases to central nervous system [Fatal]
  - White blood cell count increased [Not Recovered/Not Resolved]
  - Neutrophil count increased [Not Recovered/Not Resolved]
  - Platelet count increased [Recovered/Resolved]
